FAERS Safety Report 20951613 (Version 2)
Quarter: 2022Q3

REPORT INFORMATION
  Report Type: Spontaneous
  Country: US (occurrence: US)
  Receive Date: 20220613
  Receipt Date: 20220726
  Transmission Date: 20221026
  Serious: Yes (Hospitalization, Other)
  Sender: FDA-Public Use
  Company Number: US-PFIZER INC-202200825572

PATIENT
  Age: 60 Year
  Sex: Female

DRUGS (1)
  1. XELJANZ XR [Suspect]
     Active Substance: TOFACITINIB CITRATE
     Indication: Rheumatoid arthritis
     Dosage: 11 MG, 1X/DAY
     Route: 048
     Dates: start: 20170101

REACTIONS (13)
  - Infection [Unknown]
  - COVID-19 [Unknown]
  - Pneumonia [Unknown]
  - Depression [Unknown]
  - Product dose omission in error [Unknown]
  - Product dose omission issue [Unknown]
  - Illness [Unknown]
  - Memory impairment [Unknown]
  - Alopecia [Unknown]
  - Joint swelling [Unknown]
  - Dry skin [Unknown]
  - Loss of personal independence in daily activities [Unknown]
  - Biopsy uterus [Unknown]

NARRATIVE: CASE EVENT DATE: 20210801
